FAERS Safety Report 5640787-3 (Version None)
Quarter: 2008Q1

REPORT INFORMATION
  Report Type: 
  Country: None (occurrence: None)
  Receive Date: 20080227
  Receipt Date: 20080215
  Transmission Date: 20080703
  Serious: Yes (Other)
  Sender: FDA-Public Use
  Company Number: US-ELI_LILLY_AND_COMPANY-US200712001605

PATIENT
  Sex: Female
  Weight: 50.34 kg

DRUGS (10)
  1. FORTEO [Suspect]
     Indication: OSTEOPOROSIS
     Dates: start: 20071022, end: 20071114
  2. METOPROLOL TARTRATE [Concomitant]
  3. NORVASC [Concomitant]
  4. CRESTOR [Concomitant]
  5. ENBREL [Concomitant]
  6. ZOLOFT [Concomitant]
  7. DIGOXIN [Concomitant]
  8. K-DUR 10 [Concomitant]
  9. FLECAINIDE ACETATE [Concomitant]
  10. HYDROCHLOROTHIAZIDE [Concomitant]

REACTIONS (2)
  - ATRIAL FIBRILLATION [None]
  - ORTHOPEDIC PROCEDURE [None]
